FAERS Safety Report 17744232 (Version 1)
Quarter: 2020Q2

REPORT INFORMATION
  Report Type: Spontaneous
  Country: NL (occurrence: NL)
  Receive Date: 20200505
  Receipt Date: 20200505
  Transmission Date: 20200714
  Serious: Yes (Hospitalization)
  Sender: FDA-Public Use
  Company Number: NL-TEVA-2020-NL-1231226

PATIENT
  Age: 18 Year
  Sex: Male

DRUGS (5)
  1. LEUCOVORIN. [Concomitant]
     Active Substance: LEUCOVORIN
     Route: 065
  2. DOXORUBICIN [Interacting]
     Active Substance: DOXORUBICIN
     Indication: OSTEOSARCOMA
     Dosage: ON DAYS 1-3, IN A 5-WEEKLY REGIMEN
     Route: 065
  3. METHOTREXATE. [Suspect]
     Active Substance: METHOTREXATE
     Indication: OSTEOSARCOMA
     Dosage: 12 G/M2 IN 6 HOURS ON DAYS 21 AND 28
     Route: 042
  4. CISPLATIN. [Interacting]
     Active Substance: CISPLATIN
     Indication: OSTEOSARCOMA
     Dosage: ON DAYS 1-3, IN A 5-WEEKLY REGIMEN
     Route: 065
  5. PIPERACILLIN/TAZOBACTAM [Interacting]
     Active Substance: PIPERACILLIN SODIUM\TAZOBACTAM SODIUM
     Route: 065

REACTIONS (3)
  - Drug interaction [Recovering/Resolving]
  - Mucosal inflammation [Unknown]
  - Hepatotoxicity [Recovering/Resolving]
